FAERS Safety Report 5370937-8 (Version None)
Quarter: 2007Q2

REPORT INFORMATION
  Report Type: 
  Country: None (occurrence: None)
  Receive Date: 20070626
  Receipt Date: 20070620
  Transmission Date: 20071010
  Serious: Yes (Other)
  Sender: FDA-Public Use
  Company Number: US-ABBOTT-07P-163-0372327-00

PATIENT
  Sex: Female
  Weight: 56.75 kg

DRUGS (1)
  1. HUMIRA [Suspect]
     Indication: CROHN'S DISEASE
     Route: 058

REACTIONS (4)
  - ABDOMINAL WALL DISORDER [None]
  - HERNIA REPAIR [None]
  - INFECTION [None]
  - PYREXIA [None]
